FAERS Safety Report 23769317 (Version 1)
Quarter: 2024Q2

REPORT INFORMATION
  Report Type: Spontaneous
  Country: US (occurrence: None)
  Receive Date: 20240421
  Receipt Date: 20240421
  Transmission Date: 20240715
  Serious: No
  Sender: FDA-Public Use
  Company Number: None

PATIENT
  Age: 83 Year
  Sex: Male

DRUGS (2)
  1. CARVEDILOL [Suspect]
     Active Substance: CARVEDILOL
     Dosage: FREQUENCY : TWICE A DAY;?
     Route: 048
     Dates: start: 20210403, end: 20230718
  2. VALSARTAN [Suspect]
     Active Substance: VALSARTAN
     Dosage: FREQUENCY : DAILY;?
     Route: 048
     Dates: start: 20230504

REACTIONS (3)
  - Hypotension [None]
  - Fatigue [None]
  - Blood pressure orthostatic [None]

NARRATIVE: CASE EVENT DATE: 20230718
